FAERS Safety Report 7489474-X (Version None)
Quarter: 2011Q2

REPORT INFORMATION
  Report Type: 
  Country: None (occurrence: None)
  Receive Date: 20110518
  Receipt Date: 20110511
  Transmission Date: 20111010
  Serious: Yes (Hospitalization)
  Sender: FDA-Public Use
  Company Number: JP-GENENTECH-319026

PATIENT
  Age: 58 Year
  Sex: Female

DRUGS (18)
  1. ZEVALIN [Suspect]
     Dosage: 130 MBQ, UNK
     Route: 042
     Dates: start: 20100601
  2. ALLOPURINOL [Concomitant]
     Indication: HYPERURICAEMIA
     Dosage: UNK
     Route: 048
     Dates: start: 20100601
  3. MAGNESIUM OXIDE [Concomitant]
     Indication: CONSTIPATION
     Dosage: 2 G, QD
     Route: 048
     Dates: start: 20100601
  4. GLYCYRON [Concomitant]
     Indication: LIVER DISORDER
     Dosage: UNK
     Route: 048
     Dates: start: 20100601
  5. RITUXAN [Suspect]
     Dosage: 250 MG/M2, SINGLE
     Route: 042
     Dates: start: 20100608
  6. RITUXAN [Suspect]
     Indication: B-CELL LYMPHOMA
     Dosage: 250 MG/M2, UNK
     Route: 042
     Dates: start: 20100601
  7. LANSOPRAZOLE [Concomitant]
     Indication: REFLUX OESOPHAGITIS
     Dosage: 30 MG, QD
     Route: 048
     Dates: start: 20100601
  8. ALLELOCK [Concomitant]
     Indication: PRURITUS
     Dosage: UNK
     Route: 048
     Dates: start: 20100601
  9. ZEVALIN [Suspect]
     Indication: B-CELL LYMPHOMA
     Dosage: 11.1 MBQ, UNK
     Route: 042
     Dates: start: 20100608
  10. LULLAN [Concomitant]
     Indication: ANXIETY DISORDER
     Dosage: 4 MG, QD
     Route: 048
     Dates: start: 20100601
  11. SAXIZON [Concomitant]
     Indication: PREMEDICATION
     Dosage: 100 MG, SINGLE
     Dates: start: 20100601, end: 20100608
  12. VESICARE [Concomitant]
     Indication: POLLAKIURIA
     Dosage: UNK
     Route: 048
     Dates: start: 20100601
  13. SELENICA-R [Concomitant]
     Indication: ANXIETY DISORDER
     Dosage: 200 MG, QD
     Route: 048
     Dates: start: 20100601
  14. SILECE [Concomitant]
     Indication: INSOMNIA
     Dosage: 1 MG, QD
     Route: 048
     Dates: start: 20100601
  15. ZOLPIDEM [Concomitant]
     Indication: INSOMNIA
     Dosage: 5 MG, QD
     Route: 048
     Dates: start: 20100601
  16. TOFRANIL [Concomitant]
     Indication: ANXIETY
     Dosage: 25 MG, QD
     Route: 048
     Dates: start: 20100601
  17. PURSENNID [Concomitant]
     Indication: CONSTIPATION
     Dosage: UNK
     Route: 048
     Dates: start: 20100601
  18. ATARAX [Concomitant]
     Indication: PRURITUS
     Dosage: 0.2 G, QD
     Route: 048
     Dates: start: 20100601

REACTIONS (1)
  - BONE MARROW FAILURE [None]
